FAERS Safety Report 24225007 (Version 8)
Quarter: 2024Q4

REPORT INFORMATION
  Report Type: Spontaneous
  Country: IT (occurrence: IT)
  Receive Date: 20240820
  Receipt Date: 20241025
  Transmission Date: 20250115
  Serious: Yes (Hospitalization)
  Sender: JOHNSON AND JOHNSON
  Company Number: None

PATIENT
  Age: 34 Year
  Sex: Male
  Weight: 61 kg

DRUGS (2)
  1. RILPIVIRINE [Suspect]
     Active Substance: RILPIVIRINE
     Indication: HIV infection
     Dosage: 900 MG, Q2M
     Route: 030
     Dates: start: 20240806, end: 20240806
  2. VOCABRIA [Suspect]
     Active Substance: CABOTEGRAVIR SODIUM
     Indication: HIV infection
     Dosage: 600 MG, Q2M (600 MG/EVERY 60 DAYS)
     Route: 065
     Dates: start: 20240806, end: 20240806

REACTIONS (4)
  - Chest pain [Recovered/Resolved]
  - Erythema [Recovered/Resolved]
  - Bradycardia [Recovered/Resolved]
  - Dyspepsia [Recovered/Resolved]

NARRATIVE: CASE EVENT DATE: 20240806
